FAERS Safety Report 16310726 (Version 1)
Quarter: 2019Q2

REPORT INFORMATION
  Report Type: Spontaneous
  Country: US (occurrence: US)
  Receive Date: 20190513
  Receipt Date: 20190513
  Transmission Date: 20190711
  Serious: Yes (Hospitalization)
  Sender: FDA-Public Use
  Company Number: None

PATIENT
  Sex: Female

DRUGS (18)
  1. ELETRIPTAN. [Concomitant]
     Active Substance: ELETRIPTAN
  2. FUROSEMIDE. [Concomitant]
     Active Substance: FUROSEMIDE
  3. LEVALBUTEROL INH [Concomitant]
  4. BYSTOLIC [Concomitant]
     Active Substance: NEBIVOLOL HYDROCHLORIDE
  5. MONTELUKAST [Concomitant]
     Active Substance: MONTELUKAST SODIUM
  6. ALBUTEROL HFA [Concomitant]
     Active Substance: ALBUTEROL SULFATE
  7. TOBRAMYCIN. [Suspect]
     Active Substance: TOBRAMYCIN
     Indication: CYSTIC FIBROSIS
     Route: 055
  8. ELIQUIS [Concomitant]
     Active Substance: APIXABAN
  9. IPRATROPIUM INH [Concomitant]
  10. MAGNESIUM OXIDE. [Concomitant]
     Active Substance: MAGNESIUM OXIDE
  11. PANTOPRAZOLE [Concomitant]
     Active Substance: PANTOPRAZOLE
  12. ANASTROZOLE. [Concomitant]
     Active Substance: ANASTROZOLE
  13. INDOMETHACIN. [Concomitant]
     Active Substance: INDOMETHACIN
  14. TROKENDI XR [Concomitant]
     Active Substance: TOPIRAMATE
  15. VENLAFAXINE [Concomitant]
     Active Substance: VENLAFAXINE HYDROCHLORIDE
  16. CELECOXIB. [Concomitant]
     Active Substance: CELECOXIB
  17. TOPIRAMATE. [Concomitant]
     Active Substance: TOPIRAMATE
  18. POTASSIUM CL [Concomitant]
     Active Substance: POTASSIUM CHLORIDE

REACTIONS (1)
  - Lung infection [None]
